FAERS Safety Report 6688557-1 (Version None)
Quarter: 2010Q2

REPORT INFORMATION
  Report Type: 
  Country: None (occurrence: None)
  Receive Date: 20100420
  Receipt Date: 20100415
  Transmission Date: 20101027
  Serious: Yes (Other)
  Sender: FDA-Public Use
  Company Number: GB-MERCK-1001GBR00121

PATIENT
  Age: 68 Year
  Sex: Male

DRUGS (4)
  1. TIMOPTIC [Suspect]
     Indication: GLAUCOMA
     Route: 047
     Dates: start: 20070101
  2. TIMOPTIC [Suspect]
     Indication: INTRAOCULAR PRESSURE TEST ABNORMAL
     Route: 047
     Dates: start: 20070101
  3. PREDNISOLONE [Concomitant]
     Route: 048
  4. DORZOLAMIDE HYDROCHLORIDE [Concomitant]
     Route: 047

REACTIONS (5)
  - ALOPECIA [None]
  - DEAFNESS [None]
  - OEDEMA PERIPHERAL [None]
  - PRURITUS [None]
  - TINNITUS [None]
